FAERS Safety Report 4381441-8 (Version None)
Quarter: 2004Q2

REPORT INFORMATION
  Report Type: 
  Country: None (occurrence: None)
  Receive Date: 20040616
  Receipt Date: 20040603
  Transmission Date: 20050107
  Serious: Yes (Other)
  Sender: FDA-Public Use
  Company Number: ZONI001445

PATIENT
  Age: 15 Year
  Sex: Male

DRUGS (2)
  1. ZONEGRAN [Suspect]
     Indication: DRUG USE FOR UNKNOWN INDICATION
     Dosage: 400 MG DAILY ORAL
     Route: 048
     Dates: start: 20020101
  2. DEPAKOTE [Concomitant]

REACTIONS (1)
  - SPINAL DEFORMITY [None]
